FAERS Safety Report 14610701 (Version 1)
Quarter: 2018Q1

REPORT INFORMATION
  Report Type: Report from Study
  Country: None (occurrence: SE)
  Receive Date: 20180307
  Receipt Date: 20180307
  Transmission Date: 20180509
  Serious: Yes (Other)
  Sender: FDA-Public Use
  Company Number: SE-ABBVIE-18P-150-2275306-00

PATIENT
  Sex: Male
  Weight: 3.3 kg

DRUGS (3)
  1. HUMIRA [Suspect]
     Active Substance: ADALIMUMAB
     Indication: COLITIS ULCERATIVE
     Route: 064
     Dates: start: 20111011, end: 20150127
  2. HUMIRA [Suspect]
     Active Substance: ADALIMUMAB
     Route: 064
     Dates: start: 20150521, end: 20170516
  3. AZATHIOPRINE. [Suspect]
     Active Substance: AZATHIOPRINE
     Indication: COLITIS ULCERATIVE
     Route: 064
     Dates: start: 20160113, end: 20160113

REACTIONS (1)
  - Heart rate decreased [Unknown]

NARRATIVE: CASE EVENT DATE: 20180127
